FAERS Safety Report 15685915 (Version 2)
Quarter: 2019Q2

REPORT INFORMATION
  Report Type: Spontaneous
  Country: US (occurrence: US)
  Receive Date: 20181204
  Receipt Date: 20190501
  Transmission Date: 20190711
  Serious: Yes (Other)
  Sender: FDA-Public Use
  Company Number: US-SA-2018SA326974

PATIENT
  Age: 51 Year
  Sex: Female
  Weight: 102.96 kg

DRUGS (25)
  1. HERCEPTIN [Concomitant]
     Active Substance: TRASTUZUMAB
  2. TAXOTERE [Suspect]
     Active Substance: DOCETAXEL
     Indication: BREAST CANCER FEMALE
     Dosage: UNK UNK, UNK
     Route: 042
     Dates: start: 20070801, end: 20070801
  3. BUTALBITAL [Concomitant]
     Active Substance: BUTALBITAL
  4. TRAZODONE [Concomitant]
     Active Substance: TRAZODONE HYDROCHLORIDE
  5. LISINOPRIL. [Concomitant]
     Active Substance: LISINOPRIL
  6. FIORICET [Concomitant]
     Active Substance: ACETAMINOPHEN\BUTALBITAL\CAFFEINE
  7. HYDROCHLOROTHIAZIDE. [Concomitant]
     Active Substance: HYDROCHLOROTHIAZIDE
  8. TAXOTERE [Suspect]
     Active Substance: DOCETAXEL
     Dosage: UNK UNK, UNK
     Route: 042
     Dates: start: 20070926, end: 20070926
  9. MIRAPEX [Concomitant]
     Active Substance: PRAMIPEXOLE DIHYDROCHLORIDE
  10. SYNTHROID [Concomitant]
     Active Substance: LEVOTHYROXINE SODIUM
  11. CLONAZEPAM. [Concomitant]
     Active Substance: CLONAZEPAM
  12. GLIPIZIDE. [Concomitant]
     Active Substance: GLIPIZIDE
     Dosage: 10 MG, QD
  13. LEVOTHYROXINE. [Concomitant]
     Active Substance: LEVOTHYROXINE
     Dosage: 100 MG, QD
  14. CLARINEX [Concomitant]
     Active Substance: DESLORATADINE
  15. NEOSAR [Concomitant]
     Active Substance: CYCLOPHOSPHAMIDE
  16. CYTOXAN [Concomitant]
     Active Substance: CYCLOPHOSPHAMIDE
  17. CYCLOBENZAPRINE. [Concomitant]
     Active Substance: CYCLOBENZAPRINE
  18. CYMBALTA [Concomitant]
     Active Substance: DULOXETINE HYDROCHLORIDE
  19. VICODIN [Concomitant]
     Active Substance: ACETAMINOPHEN\HYDROCODONE BITARTRATE
  20. BUSPAR [Concomitant]
     Active Substance: BUSPIRONE HYDROCHLORIDE
  21. PAMINE [Concomitant]
     Active Substance: METHSCOPOLAMINE BROMIDE
  22. LOPERMIDE [Concomitant]
  23. NEXIUM [Concomitant]
     Active Substance: ESOMEPRAZOLE MAGNESIUM
  24. ADDERALL [Concomitant]
     Active Substance: AMPHETAMINE ASPARTATE\AMPHETAMINE SULFATE\DEXTROAMPHETAMINE SACCHARATE\DEXTROAMPHETAMINE SULFATE
  25. DICYCLOMINE [DICYCLOVERINE] [Concomitant]

REACTIONS (1)
  - Alopecia [Not Recovered/Not Resolved]

NARRATIVE: CASE EVENT DATE: 200803
